FAERS Safety Report 9934289 (Version 1)
Quarter: 2014Q1

REPORT INFORMATION
  Report Type: Spontaneous
  Country: IT (occurrence: IT)
  Receive Date: 20140228
  Receipt Date: 20140228
  Transmission Date: 20141002
  Serious: Yes (Other)
  Sender: FDA-Public Use
  Company Number: IT-WATSON-2014-03127

PATIENT
  Age: 36 Year
  Sex: Female

DRUGS (1)
  1. RISPERIDONE [Suspect]
     Indication: PRODUCT USED FOR UNKNOWN INDICATION
     Dosage: 6 MG, DAILY
     Route: 048
     Dates: start: 20130114, end: 20131029

REACTIONS (2)
  - Product substitution issue [Recovering/Resolving]
  - Drug effect decreased [Recovering/Resolving]
